FAERS Safety Report 8137049-1 (Version None)
Quarter: 2012Q1

REPORT INFORMATION
  Report Type: 
  Country: None (occurrence: None)
  Receive Date: 20120215
  Receipt Date: 20120130
  Transmission Date: 20120608
  Serious: No
  Sender: FDA-Public Use
  Company Number: US-BIOGENIDEC-2012BI002628

PATIENT
  Age: 29 Year
  Sex: Male

DRUGS (2)
  1. TYSABRI [Suspect]
     Route: 042
     Dates: start: 20111123, end: 20111221
  2. TYSABRI [Suspect]
     Indication: MULTIPLE SCLEROSIS
     Route: 042
     Dates: start: 20100122, end: 20110218

REACTIONS (18)
  - MEMORY IMPAIRMENT [None]
  - MENTAL IMPAIRMENT [None]
  - IMPAIRED DRIVING ABILITY [None]
  - ABDOMINAL PAIN UPPER [None]
  - BEDRIDDEN [None]
  - DYSURIA [None]
  - BALANCE DISORDER [None]
  - ASTHENIA [None]
  - DYSPNOEA [None]
  - WRONG DRUG ADMINISTERED [None]
  - VISUAL IMPAIRMENT [None]
  - URINE ODOUR ABNORMAL [None]
  - PAIN [None]
  - HYPOPHAGIA [None]
  - CONSTIPATION [None]
  - ABDOMINAL DISCOMFORT [None]
  - COORDINATION ABNORMAL [None]
  - BLADDER DISORDER [None]
